FAERS Safety Report 5024325-4 (Version None)
Quarter: 2006Q2

REPORT INFORMATION
  Report Type: 
  Country: None (occurrence: None)
  Receive Date: 20060613
  Receipt Date: 20060602
  Transmission Date: 20061013
  Serious: Yes (Hospitalization)
  Sender: FDA-Public Use
  Company Number: FR-ABBOTT-06P-056-0335146-00

PATIENT
  Sex: Female

DRUGS (3)
  1. MONONAXY [Suspect]
     Indication: CHRONIC OBSTRUCTIVE PULMONARY DISEASE
     Route: 048
     Dates: start: 20060424, end: 20060424
  2. ACETYLCYSTEINE [Concomitant]
     Indication: DRUG USE FOR UNKNOWN INDICATION
  3. FENSPIRIDE HYDROCHLORIDE [Concomitant]
     Indication: DRUG USE FOR UNKNOWN INDICATION

REACTIONS (3)
  - BLOOD PRESSURE DECREASED [None]
  - HYPERHIDROSIS [None]
  - MALAISE [None]
